FAERS Safety Report 25254470 (Version 1)
Quarter: 2025Q2

REPORT INFORMATION
  Report Type: Spontaneous
  Country: CN (occurrence: CN)
  Receive Date: 20250430
  Receipt Date: 20250430
  Transmission Date: 20250716
  Serious: Yes (Other)
  Sender: AMGEN
  Company Number: CN-AMGEN-CHNSP2025083092

PATIENT
  Age: 56 Year
  Sex: Male
  Weight: 67 kg

DRUGS (5)
  1. CARFILZOMIB [Suspect]
     Active Substance: CARFILZOMIB
     Indication: Plasma cell myeloma
     Dosage: 60 MILLIGRAM, Q2WK
     Route: 040
  2. CARFILZOMIB [Suspect]
     Active Substance: CARFILZOMIB
     Dosage: 60 MILLIGRAM, Q2WK
     Route: 040
     Dates: start: 20250410, end: 20250410
  3. DARATUMUMAB [Suspect]
     Active Substance: DARATUMUMAB
     Indication: Plasma cell myeloma
     Dosage: 1200 MILLIGRAM, QWK
     Route: 040
  4. DARATUMUMAB [Suspect]
     Active Substance: DARATUMUMAB
     Dosage: 1200 MILLIGRAM, QWK
     Route: 040
     Dates: start: 20250410, end: 20250410
  5. DEXTROSE [Concomitant]
     Active Substance: DEXTROSE MONOHYDRATE
     Indication: Product used for unknown indication
     Route: 040
     Dates: start: 20250410, end: 20250410

REACTIONS (3)
  - Abdominal distension [Recovering/Resolving]
  - Pancreatitis acute [Recovering/Resolving]
  - Decreased appetite [Recovering/Resolving]

NARRATIVE: CASE EVENT DATE: 20250411
